FAERS Safety Report 26148835 (Version 1)
Quarter: 2025Q4

REPORT INFORMATION
  Report Type: Spontaneous
  Country: GB (occurrence: GB)
  Receive Date: 20251212
  Receipt Date: 20251212
  Transmission Date: 20260118
  Serious: Yes (Disabling, Other)
  Sender: TAKEDA
  Company Number: None

PATIENT
  Age: 18 Year
  Sex: Male
  Weight: 70 kg

DRUGS (2)
  1. LISDEXAMFETAMINE DIMESYLATE [Suspect]
     Active Substance: LISDEXAMFETAMINE DIMESYLATE
     Indication: Attention deficit hyperactivity disorder
     Dosage: 40 MILLIGRAM
  2. CAFFEINE [Concomitant]
     Active Substance: CAFFEINE
     Dosage: UNK

REACTIONS (13)
  - Disturbance in social behaviour [Not Recovered/Not Resolved]
  - Social avoidant behaviour [Not Recovered/Not Resolved]
  - Antisocial behaviour [Not Recovered/Not Resolved]
  - Somnolence [Not Recovered/Not Resolved]
  - Cognitive disorder [Not Recovered/Not Resolved]
  - Anger [Unknown]
  - Impulsive behaviour [Unknown]
  - Sleep disorder [Unknown]
  - Frustration tolerance decreased [Unknown]
  - Logorrhoea [Unknown]
  - Irritability [Unknown]
  - Feeling abnormal [Unknown]
  - Time perception altered [Unknown]
